FAERS Safety Report 8443731-9 (Version None)
Quarter: 2012Q2

REPORT INFORMATION
  Report Type: 
  Country: None (occurrence: None)
  Receive Date: 20120618
  Receipt Date: 20120606
  Transmission Date: 20120825
  Serious: Yes (Other)
  Sender: FDA-Public Use
  Company Number: US-ELI_LILLY_AND_COMPANY-US201204001229

PATIENT
  Age: 40 Year
  Sex: Male

DRUGS (5)
  1. VALIUM [Concomitant]
  2. SOMA [Concomitant]
  3. PERCOCET [Concomitant]
  4. ANTIHYPERTENSIVES [Concomitant]
     Indication: HYPERTENSION
  5. CYMBALTA [Suspect]
     Indication: MUSCULOSKELETAL PAIN
     Dosage: 30 MG, QD
     Dates: start: 20120313, end: 20120327

REACTIONS (24)
  - PALPITATIONS [None]
  - TONGUE DISORDER [None]
  - DIARRHOEA [None]
  - DEHYDRATION [None]
  - ANXIETY [None]
  - PHARYNGEAL OEDEMA [None]
  - THIRST [None]
  - FATIGUE [None]
  - DYSPHONIA [None]
  - CHROMATURIA [None]
  - ASTHENIA [None]
  - DIZZINESS [None]
  - NAUSEA [None]
  - ACNE [None]
  - GLOSSODYNIA [None]
  - DRY SKIN [None]
  - VISION BLURRED [None]
  - CHEST PAIN [None]
  - DEPRESSION [None]
  - SCAR [None]
  - URINE ODOUR ABNORMAL [None]
  - DRY MOUTH [None]
  - SWOLLEN TONGUE [None]
  - PAIN [None]
